FAERS Safety Report 10185721 (Version 5)
Quarter: 2015Q3

REPORT INFORMATION
  Report Type: Report from Study
  Country: US (occurrence: US)
  Receive Date: 20140521
  Receipt Date: 20150807
  Transmission Date: 20151125
  Serious: Yes (Other)
  Sender: FDA-Public Use
  Company Number: US-SA-2014SA055518

PATIENT
  Age: 61 Year
  Sex: Female

DRUGS (1)
  1. AUBAGIO [Suspect]
     Active Substance: TERIFLUNOMIDE
     Indication: MULTIPLE SCLEROSIS
     Route: 048
     Dates: start: 20140417

REACTIONS (9)
  - Arthropathy [Unknown]
  - Unevaluable event [Unknown]
  - Gait disturbance [Unknown]
  - Visual acuity reduced [Not Recovered/Not Resolved]
  - Memory impairment [Not Recovered/Not Resolved]
  - Dementia [Recovering/Resolving]
  - Euphoric mood [Recovering/Resolving]
  - Hypersomnia [Not Recovered/Not Resolved]
  - Retinal detachment [Unknown]
